FAERS Safety Report 7260039-8 (Version None)
Quarter: 2011Q1

REPORT INFORMATION
  Report Type: 
  Country: None (occurrence: None)
  Receive Date: 20110130
  Receipt Date: 20100902
  Transmission Date: 20110831
  Serious: No
  Sender: FDA-Public Use
  Company Number: US-ABBOTT-10P-163-0669578-00

PATIENT
  Sex: Female
  Weight: 78.996 kg

DRUGS (5)
  1. AZATHIOPRINE [Concomitant]
     Indication: RHEUMATOID ARTHRITIS
  2. PLAQUENIL [Concomitant]
     Indication: PRODUCT USED FOR UNKNOWN INDICATION
  3. ARAVA [Concomitant]
     Indication: PRODUCT USED FOR UNKNOWN INDICATION
  4. HUMIRA [Suspect]
     Indication: RHEUMATOID ARTHRITIS
     Route: 058
     Dates: start: 20100816
  5. PROTONIX [Concomitant]
     Indication: HIATUS HERNIA

REACTIONS (3)
  - PURULENT DISCHARGE [None]
  - INFECTION [None]
  - FURUNCLE [None]
